FAERS Safety Report 18258511 (Version 4)
Quarter: 2022Q1

REPORT INFORMATION
  Report Type: Spontaneous
  Country: US (occurrence: US)
  Receive Date: 20200911
  Receipt Date: 20220210
  Transmission Date: 20220423
  Serious: No
  Sender: FDA-Public Use
  Company Number: US-PFIZER INC-2020344222

PATIENT
  Age: 74 Year
  Sex: Female
  Weight: 56.7 kg

DRUGS (5)
  1. ESTRING [Suspect]
     Active Substance: ESTRADIOL
     Indication: Atrophic vulvovaginitis
     Dosage: 2 MG, EVERY 3 MONTHS
     Route: 067
  2. ESTRING [Suspect]
     Active Substance: ESTRADIOL
     Dosage: 2 MG, EVERY 3 MONTHS
     Route: 067
     Dates: start: 20200729
  3. ESTRING [Suspect]
     Active Substance: ESTRADIOL
     Dosage: UNK
     Dates: end: 202009
  4. SPIRIVA [Concomitant]
     Active Substance: TIOTROPIUM BROMIDE MONOHYDRATE
     Dosage: UNK
  5. SYMBICORT [Concomitant]
     Active Substance: BUDESONIDE\FORMOTEROL FUMARATE DIHYDRATE
     Dosage: UNK

REACTIONS (8)
  - Device ineffective [Unknown]
  - Intentional device misuse [Unknown]
  - Poor quality device used [Unknown]
  - Product lot number issue [Unknown]
  - Device issue [Recovered/Resolved with Sequelae]
  - Medical device discomfort [Unknown]
  - Vulvovaginal pain [Unknown]
  - Vulvovaginal dryness [Unknown]

NARRATIVE: CASE EVENT DATE: 20200101
